FAERS Safety Report 20469480 (Version 2)
Quarter: 2022Q1

REPORT INFORMATION
  Report Type: Other
  Country: US (occurrence: None)
  Receive Date: 20220214
  Receipt Date: 20220226
  Transmission Date: 20220423
  Serious: Yes (Other)
  Sender: FDA-Public Use
  Company Number: US-ROCHE-3016581

PATIENT
  Age: 49 Year
  Sex: Female
  Weight: 113.50 kg

DRUGS (2)
  1. OCREVUS [Suspect]
     Active Substance: OCRELIZUMAB
     Indication: Relapsing-remitting multiple sclerosis
     Dosage: DOT: 23/JUL/2019, 08/JUL/2019?300MG ON DAY 1 AND DAY 14, THEN INFUSE 600MG EVERY 180 DAYS AFTER FIRS
     Route: 042
     Dates: start: 201907
  2. OCREVUS [Suspect]
     Active Substance: OCRELIZUMAB
     Indication: Multiple sclerosis

REACTIONS (2)
  - Herpes simplex [Not Recovered/Not Resolved]
  - Magnetic resonance imaging abnormal [Not Recovered/Not Resolved]

NARRATIVE: CASE EVENT DATE: 20211101
